FAERS Safety Report 6516621-6 (Version None)
Quarter: 2009Q4

REPORT INFORMATION
  Report Type: 
  Country: None (occurrence: None)
  Receive Date: 20091223
  Receipt Date: 20091215
  Transmission Date: 20100525
  Serious: Yes (Other)
  Sender: FDA-Public Use
  Company Number: US-MERCK-0911USA04341

PATIENT
  Age: 48 Year
  Sex: Male
  Weight: 116 kg

DRUGS (16)
  1. JANUVIA [Suspect]
     Indication: TYPE 2 DIABETES MELLITUS
     Route: 048
     Dates: start: 20080319
  2. GLIPIZIDE [Concomitant]
     Indication: TYPE 2 DIABETES MELLITUS
     Dosage: 10
     Route: 048
  3. TEKTURNA [Concomitant]
     Route: 065
  4. ADVAIR DISKUS 100/50 [Concomitant]
     Route: 065
  5. SPIRIVA [Concomitant]
     Route: 065
  6. SINGULAIR [Concomitant]
     Route: 048
  7. DIOVAN [Concomitant]
     Indication: HYPERTENSION
     Dosage: 20 DAILY
     Route: 048
  8. DOXAZOSIN MESYLATE [Concomitant]
     Route: 065
  9. CARVEDILOL [Concomitant]
     Route: 065
  10. CADUET [Concomitant]
     Indication: HYPERTENSION
     Dosage: 10/80
     Route: 048
  11. CADUET [Concomitant]
     Indication: BLOOD CHOLESTEROL
     Dosage: 10/80
     Route: 048
  12. XANAX [Concomitant]
     Route: 065
  13. CATAPRES [Concomitant]
     Indication: HYPERTENSION
     Dosage: 3 DA
     Route: 065
  14. ALPRAZOLAM [Concomitant]
     Route: 065
  15. LASIX [Concomitant]
     Indication: HYPERTENSION
     Route: 048
  16. GLUCOTROL [Concomitant]
     Route: 065

REACTIONS (3)
  - BLOOD GLUCOSE ABNORMAL [None]
  - DIVERTICULAR PERFORATION [None]
  - MEDICATION RESIDUE [None]
